FAERS Safety Report 21279253 (Version 1)
Quarter: 2022Q3

REPORT INFORMATION
  Report Type: Spontaneous
  Country: JP (occurrence: JP)
  Receive Date: 20220901
  Receipt Date: 20220901
  Transmission Date: 20221026
  Serious: Yes (Other)
  Sender: FDA-Public Use
  Company Number: JP-SUN PHARMACEUTICAL INDUSTRIES LTD-2022R1-353003

PATIENT
  Age: 37 Year
  Sex: Female

DRUGS (2)
  1. METRONIDAZOLE [Suspect]
     Active Substance: METRONIDAZOLE
     Indication: Cervicitis
     Dosage: 250 MILLIGRAM, TID
     Route: 065
  2. HYDROXYPROGESTERONE [Suspect]
     Active Substance: HYDROXYPROGESTERONE
     Indication: Cervix disorder
     Dosage: 250 MICROGRAM, WEEKLY
     Route: 030

REACTIONS (3)
  - Exposure during pregnancy [Unknown]
  - Live birth [Unknown]
  - Uterine prolapse [Unknown]
